FAERS Safety Report 15659035 (Version 1)
Quarter: 2018Q4

REPORT INFORMATION
  Report Type: Report from Study
  Country: TN (occurrence: TN)
  Receive Date: 20181127
  Receipt Date: 20181127
  Transmission Date: 20190205
  Serious: Yes (Death, Hospitalization)
  Sender: FDA-Public Use
  Company Number: TN-SAKK-2018SA315868AA

PATIENT
  Age: 60 Year
  Sex: Male

DRUGS (5)
  1. ATOR [Concomitant]
     Active Substance: ATORVASTATIN CALCIUM
  2. CLOPIDOGREL BISULFATE. [Suspect]
     Active Substance: CLOPIDOGREL BISULFATE
     Indication: WOLFRAM SYNDROME
     Dosage: 75 MG, ONCE DAILY
     Route: 048
     Dates: start: 20180319, end: 20181030
  3. ASPIRINE [Concomitant]
     Active Substance: ASPIRIN
  4. CORDARONE [Concomitant]
     Active Substance: AMIODARONE HYDROCHLORIDE
  5. CINCOR [Concomitant]

REACTIONS (2)
  - Cardiac arrest [Fatal]
  - Chest pain [Unknown]

NARRATIVE: CASE EVENT DATE: 20181030
